FAERS Safety Report 6132359-1 (Version None)
Quarter: 2009Q1

REPORT INFORMATION
  Report Type: 
  Country: None (occurrence: None)
  Receive Date: 20090324
  Receipt Date: 20090311
  Transmission Date: 20090719
  Serious: Yes (Other)
  Sender: FDA-Public Use
  Company Number: 2009AL001460

PATIENT
  Sex: Male

DRUGS (3)
  1. HYDROCHLOROTHIAZDE TAB [Suspect]
     Indication: HYPERTENSION
     Dosage: PO
     Route: 048
  2. OLMETEC [Concomitant]
  3. OLMESARTAN MEDOXOMIL AND HYDROCHLOROTHIZIDE [Concomitant]

REACTIONS (1)
  - GLOMERULAR FILTRATION RATE DECREASED [None]
